FAERS Safety Report 6152483-7 (Version None)
Quarter: 2009Q2

REPORT INFORMATION
  Report Type: 
  Country: None (occurrence: None)
  Receive Date: 20090413
  Receipt Date: 20090402
  Transmission Date: 20091009
  Serious: Yes (Other)
  Sender: FDA-Public Use
  Company Number: PHHY2009JP12480

PATIENT
  Age: 56 Year
  Sex: Male
  Weight: 71 kg

DRUGS (10)
  1. DIOVAN [Suspect]
     Indication: HYPERTENSION
     Dosage: 80 MG, QD
     Route: 048
     Dates: start: 20080128, end: 20080402
  2. DIOVAN [Suspect]
     Dosage: 40 MG, QD
     Route: 048
     Dates: start: 20080403
  3. MICARDIS [Concomitant]
     Indication: HYPERTENSION
     Dosage: 20 MG
     Route: 048
     Dates: start: 20060830, end: 20080127
  4. NOVORAPID [Concomitant]
     Dosage: 54 IU
     Route: 058
     Dates: start: 20060502
  5. ZYLORIC ^FRESENIUS^ [Concomitant]
     Dosage: 100 MG
     Route: 048
     Dates: start: 20060320
  6. KINEDAK [Concomitant]
     Dosage: 150 MG
     Route: 048
     Dates: start: 20051221
  7. PERSANTIN-L [Concomitant]
     Dosage: 150 MG
     Route: 048
     Dates: start: 20051003
  8. LEVEMIR [Concomitant]
     Dosage: 6 IU
     Route: 058
     Dates: start: 20080227
  9. ACTOS [Concomitant]
     Dosage: 15 MG
     Route: 048
     Dates: start: 20070226, end: 20080724
  10. CALCIUM POLYSTYRENE SULPHONATE [Concomitant]
     Dosage: 5 G
     Route: 048
     Dates: start: 20080707

REACTIONS (4)
  - BLOOD CREATININE INCREASED [None]
  - BLOOD POTASSIUM INCREASED [None]
  - BLOOD TRIGLYCERIDES INCREASED [None]
  - BLOOD UREA INCREASED [None]
